FAERS Safety Report 7503995-2 (Version None)
Quarter: 2011Q2

REPORT INFORMATION
  Report Type: 
  Country: None (occurrence: None)
  Receive Date: 20110524
  Receipt Date: 20110524
  Transmission Date: 20111010
  Serious: Yes (Hospitalization)
  Sender: FDA-Public Use
  Company Number: None

PATIENT
  Age: 59 Year
  Sex: Female
  Weight: 90.1 kg

DRUGS (20)
  1. CALCIUM POLYCARBOPHIL [Concomitant]
  2. CLOPIDOGREL [Concomitant]
  3. VITAMIN AND MINERAL PRENATAL SUPPLEMENT W/ FOLIC ACID CAP [Concomitant]
  4. FUROSEMIDE [Concomitant]
  5. IBUPROGEN [Concomitant]
  6. LOPERAMIDE [Suspect]
  7. SIMVASTATIN [Concomitant]
  8. DOCUSATE [Concomitant]
  9. FERROUS GLUCONATE [Concomitant]
  10. METOPROLOL SUCCINATE [Concomitant]
  11. DIPHENHYDRAMINE HCL [Concomitant]
  12. OMEGA-3 FATTY ACIDS [Concomitant]
  13. SERTRALINE HYDROCHLORIDE [Concomitant]
  14. LISINOPRIL [Suspect]
     Indication: HYPERTENSION
     Dosage: LISINOPRIL 10 MG DAILY ORAL 047
     Route: 048
     Dates: start: 20110504, end: 20110506
  15. POTASSIUM CHLORIDE [Concomitant]
  16. RANITIDINE [Concomitant]
  17. THIAMINE [Concomitant]
  18. OXYCODONE HCL [Concomitant]
  19. ASPIRIN [Concomitant]
  20. CYCLOBENZAPRINE [Concomitant]

REACTIONS (3)
  - DIARRHOEA [None]
  - HYPOVOLAEMIA [None]
  - RENAL FAILURE [None]
